FAERS Safety Report 7585049-2 (Version None)
Quarter: 2011Q2

REPORT INFORMATION
  Report Type: 
  Country: None (occurrence: None)
  Receive Date: 20110630
  Receipt Date: 20110621
  Transmission Date: 20111010
  Serious: Yes (Other)
  Sender: FDA-Public Use
  Company Number: NL-ASTRAZENECA-2011SE37755

PATIENT
  Age: 78 Year
  Sex: Female

DRUGS (6)
  1. DICLOFENAC SODIUM [Concomitant]
     Route: 048
     Dates: start: 20110520, end: 20110615
  2. DICLOABAK OOGDRUPPELS [Concomitant]
     Dosage: 1 MG/ML FLACON 10 ML, 1 GGT DROPS THREE TIMES A DAY
     Route: 047
     Dates: start: 20110520
  3. DEXAMYTREX OOGDRUPPELS FLACON [Concomitant]
     Route: 047
     Dates: start: 20110520
  4. PROPRANOLOL [Concomitant]
     Route: 048
  5. OMEPRAZOLE [Suspect]
     Route: 048
  6. VASELINECETOMACROGOLCREME FNA [Concomitant]
     Route: 003

REACTIONS (1)
  - CIRCULATORY COLLAPSE [None]
